FAERS Safety Report 6741326-6 (Version None)
Quarter: 2010Q2

REPORT INFORMATION
  Report Type: 
  Country: None (occurrence: None)
  Receive Date: 20100526
  Receipt Date: 20100519
  Transmission Date: 20101027
  Serious: Yes (Other)
  Sender: FDA-Public Use
  Company Number: US-PFIZER INC-2006046802

PATIENT
  Sex: Male
  Weight: 77.098 kg

DRUGS (17)
  1. LIPITOR [Suspect]
     Indication: BLOOD CHOLESTEROL INCREASED
     Route: 048
  2. LIPITOR [Suspect]
     Indication: BLOOD PRESSURE
  3. LANTUS [Concomitant]
     Indication: DIABETES MELLITUS
     Dosage: 15 IU, 1X/DAY
     Route: 058
  4. GLUCOPHAGE XR [Concomitant]
     Indication: DIABETES MELLITUS
     Dosage: 500 MG, 2X/DAY
     Route: 048
  5. ACTOS [Concomitant]
     Dosage: 15 MG, 1X/DAY
     Route: 048
  6. NORVASC [Concomitant]
     Dosage: 10 MG, 1X/DAY
     Route: 048
  7. LISINOPRIL [Concomitant]
     Dosage: 20-25 MG, 1X/DAY
     Route: 048
  8. CLONIDINE [Concomitant]
     Dosage: 0.2 MG, 2X/DAY
     Route: 048
  9. METOPROLOL [Concomitant]
     Route: 065
  10. VITAMIN E [Concomitant]
     Route: 065
  11. FOLIC ACID [Concomitant]
     Route: 065
  12. VITAMIN B-12 [Concomitant]
     Route: 065
  13. ALPHA LIPOIC ACID [Concomitant]
     Route: 065
  14. COENZYME Q10 [Concomitant]
     Route: 065
  15. LABETALOL [Concomitant]
     Dosage: 200 MG, 2X/DAY
     Route: 048
  16. GLUCOPHAGE [Concomitant]
     Indication: DIABETES MELLITUS
     Dosage: 500 MG, 2X/DAY
     Route: 048
  17. ACETYLSALICYLIC ACID [Concomitant]
     Dosage: UNK MG, 1X/DAY

REACTIONS (6)
  - ASTHENIA [None]
  - EXERCISE TOLERANCE DECREASED [None]
  - FATIGUE [None]
  - LETHARGY [None]
  - MUSCLE SPASMS [None]
  - MUSCULAR WEAKNESS [None]
